FAERS Safety Report 23580376 (Version 2)
Quarter: 2024Q1

REPORT INFORMATION
  Report Type: Report from Study
  Country: CA (occurrence: CA)
  Receive Date: 20240229
  Receipt Date: 20240305
  Transmission Date: 20240409
  Serious: Yes (Hospitalization)
  Sender: FDA-Public Use
  Company Number: CA-HORIZON THERAPEUTICS-HZN-2024-001342

PATIENT

DRUGS (4)
  1. RAVICTI [Suspect]
     Active Substance: GLYCEROL PHENYLBUTYRATE
     Indication: Urea cycle disorder
     Dosage: 4 ML, TID
     Route: 065
     Dates: start: 20190114
  2. SODIUM BENZOATE [Concomitant]
     Active Substance: SODIUM BENZOATE
     Dosage: UNK
  3. CARNITINE [Concomitant]
     Active Substance: CARNITINE
     Dosage: UNK
  4. Ranidine [Concomitant]
     Dosage: UNK

REACTIONS (1)
  - Dental caries [Recovered/Resolved]
